FAERS Safety Report 24673580 (Version 2)
Quarter: 2025Q4

REPORT INFORMATION
  Report Type: Spontaneous
  Country: EU (occurrence: EU)
  Receive Date: 20241128
  Receipt Date: 20251031
  Transmission Date: 20260118
  Serious: Yes (Other)
  Sender: TEVA
  Company Number: EU-TEVA-VS-3268103

PATIENT
  Age: 26 Year
  Sex: Female

DRUGS (7)
  1. OLANZAPINE [Suspect]
     Active Substance: OLANZAPINE
     Indication: Behaviour disorder
     Route: 065
     Dates: start: 201906
  2. PIPAMPERONE [Concomitant]
     Active Substance: PIPAMPERONE
     Indication: Behaviour disorder
     Route: 065
     Dates: start: 201906
  3. RISPERIDONE [Concomitant]
     Active Substance: RISPERIDONE
     Indication: Behaviour disorder
     Route: 065
     Dates: start: 201906
  4. ARIPIPRAZOLE [Concomitant]
     Active Substance: ARIPIPRAZOLE
     Indication: Neuropsychiatric syndrome
     Route: 065
     Dates: start: 201906
  5. TIAPRIDE [Concomitant]
     Active Substance: TIAPRIDE
     Indication: Behaviour disorder
     Route: 065
     Dates: start: 201906
  6. TIAPRIDE [Concomitant]
     Active Substance: TIAPRIDE
     Indication: Behaviour disorder
     Route: 065
  7. PALIPERIDONE [Concomitant]
     Active Substance: PALIPERIDONE
     Indication: Behaviour disorder
     Route: 065
     Dates: start: 201906

REACTIONS (2)
  - Weight increased [Unknown]
  - Hypercholesterolaemia [Unknown]
